FAERS Safety Report 9091775 (Version 1)
Quarter: 2013Q1

REPORT INFORMATION
  Report Type: Report from Study
  Country: US (occurrence: US)
  Receive Date: 20130201
  Receipt Date: 20130201
  Transmission Date: 20140127
  Serious: No
  Sender: FDA-Public Use
  Company Number: US-ABBOTT-12P-163-1019816-00

PATIENT
  Age: 42 Year
  Sex: Female

DRUGS (9)
  1. HUMIRA [Suspect]
     Indication: RHEUMATOID ARTHRITIS
     Route: 058
     Dates: start: 20121102
  2. PLAQUENIL [Concomitant]
     Indication: PRODUCT USED FOR UNKNOWN INDICATION
  3. MOBIC [Concomitant]
     Indication: PRODUCT USED FOR UNKNOWN INDICATION
  4. LORTAB [Concomitant]
     Indication: ARTHRALGIA
  5. PAXIL [Concomitant]
     Indication: DEPRESSION
  6. PAXIL [Concomitant]
     Indication: BIPOLAR DISORDER
  7. DEPAKOTE [Concomitant]
     Indication: BIPOLAR DISORDER
  8. LEVOTHYROXIN [Concomitant]
     Indication: HYPOTHYROIDISM
     Dosage: DAILY
  9. METOPROLOL [Concomitant]
     Indication: HYPERTENSION

REACTIONS (4)
  - Skin lesion [Not Recovered/Not Resolved]
  - Pruritus [Not Recovered/Not Resolved]
  - Burning sensation [Not Recovered/Not Resolved]
  - Erythema [Not Recovered/Not Resolved]
